FAERS Safety Report 7034573-X (Version None)
Quarter: 2010Q4

REPORT INFORMATION
  Report Type: 
  Country: None (occurrence: None)
  Receive Date: 20101008
  Receipt Date: 20100930
  Transmission Date: 20110411
  Serious: Yes (Hospitalization)
  Sender: FDA-Public Use
  Company Number: DE-SANOFI-AVENTIS-200910542DE

PATIENT
  Age: 92 Year
  Sex: Female
  Weight: 85 kg

DRUGS (12)
  1. CLEXANE [Suspect]
     Indication: PULMONARY EMBOLISM
     Dosage: DOSE UNIT: 20 MG
     Route: 058
     Dates: start: 20080901, end: 20081030
  2. FUROSEMIDE [Suspect]
     Dosage: DOSE UNIT: 40 MG
     Route: 048
     Dates: start: 20080801, end: 20081030
  3. FUROSEMIDE [Suspect]
     Route: 048
     Dates: start: 20080101
  4. ATACAND [Suspect]
     Dosage: DOSE AS USED: 16 MG, ORAL 2 IN DAY
     Route: 048
     Dates: end: 20081030
  5. ATACAND [Suspect]
     Route: 048
     Dates: start: 20080101
  6. ALDACTONE [Suspect]
     Route: 048
     Dates: start: 20080901, end: 20081030
  7. ALDACTONE [Suspect]
     Route: 048
     Dates: start: 20080101
  8. ARICEPT [Concomitant]
     Indication: DEMENTIA
     Route: 048
     Dates: start: 20080901
  9. EUNERPAN [Concomitant]
     Indication: DEMENTIA
     Route: 048
     Dates: start: 20080901
  10. NULYTELY [Concomitant]
     Indication: CONSTIPATION
     Dosage: DOSE AS USED: NOT REPORTED
  11. AMLODIPINE BESYLATE [Concomitant]
     Dosage: DOSE AS USED: 5 MG, ORAL 2 IN DAY
     Route: 048
  12. PANTOPRAZOLE SODIUM [Concomitant]
     Route: 048
     Dates: start: 20080901

REACTIONS (3)
  - HAEMORRHAGE [None]
  - HYPERKALAEMIA [None]
  - HYPONATRAEMIA [None]
